FAERS Safety Report 23802173 (Version 1)
Quarter: 2024Q2

REPORT INFORMATION
  Report Type: Spontaneous
  Country: US (occurrence: US)
  Receive Date: 20240501
  Receipt Date: 20240501
  Transmission Date: 20240716
  Serious: Yes (Other)
  Sender: FDA-Public Use
  Company Number: None

PATIENT
  Age: 56 Year
  Sex: Female

DRUGS (9)
  1. PREDNISOLONE [Suspect]
     Active Substance: PREDNISOLONE
     Indication: Necrobiosis lipoidica diabeticorum
     Dosage: 30 MILLIGRAM, QD (DAILY)
     Route: 048
  2. METHOTREXATE [Suspect]
     Active Substance: METHOTREXATE
     Indication: Necrobiosis lipoidica diabeticorum
     Dosage: 15 MILLIGRAM WEEKLY
     Route: 065
  3. DOXYCYCLINE [Suspect]
     Active Substance: DOXYCYCLINE
     Indication: Necrobiosis lipoidica diabeticorum
     Dosage: 100 MILLIGRAM, BID
     Route: 065
  4. AZATHIOPRINE [Suspect]
     Active Substance: AZATHIOPRINE
     Indication: Necrobiosis lipoidica diabeticorum
     Dosage: 100 MILLIGRAM, QD (DAILY)
     Route: 065
  5. AZATHIOPRINE [Suspect]
     Active Substance: AZATHIOPRINE
     Dosage: 100 MILLIGRAM, QD (DAILY)
     Route: 065
     Dates: start: 202202, end: 202205
  6. AZATHIOPRINE [Suspect]
     Active Substance: AZATHIOPRINE
     Dosage: 250 MILLIGRAM, QD (DAILY)
     Route: 065
     Dates: start: 202205, end: 2022
  7. RITUXIMAB [Suspect]
     Active Substance: RITUXIMAB
     Indication: Necrobiosis lipoidica diabeticorum
     Dosage: 1 GRAM, EVERY 6 MONTHS
     Route: 065
  8. INFLIXIMAB [Concomitant]
     Active Substance: INFLIXIMAB
     Indication: Necrobiosis lipoidica diabeticorum
     Dosage: 10 MILLIGRAM/KILOGRAM, EVERY 8 WEEKS
     Route: 065
  9. PENTOXIFYLLINE [Concomitant]
     Active Substance: PENTOXIFYLLINE
     Indication: Necrobiosis lipoidica diabeticorum
     Dosage: 400 MILLIGRAM, TID
     Route: 048

REACTIONS (5)
  - Therapy non-responder [Unknown]
  - Therapy partial responder [Unknown]
  - Neutropenia [Recovered/Resolved]
  - Cytomegalovirus colitis [Unknown]
  - Off label use [Unknown]

NARRATIVE: CASE EVENT DATE: 20220101
